FAERS Safety Report 17252350 (Version 1)
Quarter: 2020Q1

REPORT INFORMATION
  Report Type: Spontaneous
  Country: US (occurrence: US)
  Receive Date: 20200109
  Receipt Date: 20200109
  Transmission Date: 20200409
  Serious: No
  Sender: FDA-Public Use
  Company Number: US-ASTRAZENECA-2019SF81260

PATIENT
  Age: 77 Year
  Sex: Female

DRUGS (2)
  1. BYDUREON BCISE [Suspect]
     Active Substance: EXENATIDE
     Indication: BLOOD GLUCOSE ABNORMAL
     Dosage: ONCE A WEEK
     Route: 058
     Dates: start: 20191203
  2. TOUJEO [Concomitant]
     Active Substance: INSULIN GLARGINE

REACTIONS (6)
  - Product use issue [Unknown]
  - Injection site pain [Unknown]
  - Injection site extravasation [Unknown]
  - Muscular weakness [Unknown]
  - Injection site discomfort [Unknown]
  - Injection site indentation [Unknown]

NARRATIVE: CASE EVENT DATE: 20191210
